FAERS Safety Report 26047061 (Version 1)
Quarter: 2025Q4

REPORT INFORMATION
  Report Type: Spontaneous
  Country: US (occurrence: US)
  Receive Date: 20251114
  Receipt Date: 20251114
  Transmission Date: 20260118
  Serious: No
  Sender: OPTINOSE INC
  Company Number: US-OptiNose US, Inc-2025OPT000080

PATIENT

DRUGS (2)
  1. XHANCE [Suspect]
     Active Substance: FLUTICASONE PROPIONATE
     Indication: Chronic rhinosinusitis with nasal polyps
     Dosage: 186 MICROGRAM, BID
     Route: 045
     Dates: start: 20250314, end: 20250324
  2. DEVICE [Suspect]
     Active Substance: DEVICE
     Indication: Chronic rhinosinusitis with nasal polyps
     Dosage: UNK UNK
     Route: 045

REACTIONS (5)
  - Pyrexia [Recovered/Resolved]
  - Chills [Recovered/Resolved]
  - Hot flush [Recovered/Resolved]
  - Asthenia [Recovered/Resolved]
  - Dizziness [Recovered/Resolved]

NARRATIVE: CASE EVENT DATE: 20250319
